FAERS Safety Report 20640122 (Version 1)
Quarter: 2022Q1

REPORT INFORMATION
  Report Type: Spontaneous
  Country: US (occurrence: None)
  Receive Date: 20220326
  Receipt Date: 20220326
  Transmission Date: 20220424
  Serious: No
  Sender: FDA-Public Use
  Company Number: 2022A113808

PATIENT
  Age: 27717 Day
  Sex: Male

DRUGS (2)
  1. LOKELMA [Suspect]
     Active Substance: SODIUM ZIRCONIUM CYCLOSILICATE
     Indication: Hyperkalaemia
     Dosage: 10.0G INTERMITTENT
     Route: 048
     Dates: start: 20220312, end: 20220313
  2. LOKELMA [Suspect]
     Active Substance: SODIUM ZIRCONIUM CYCLOSILICATE
     Indication: Hyperkalaemia
     Dosage: 10.0G INTERMITTENT
     Route: 048
     Dates: start: 20220313

REACTIONS (1)
  - X-ray abnormal [Unknown]

NARRATIVE: CASE EVENT DATE: 20220313
